FAERS Safety Report 26037993 (Version 2)
Quarter: 2025Q4

REPORT INFORMATION
  Report Type: Report from Study
  Country: US (occurrence: US)
  Receive Date: 20251112
  Receipt Date: 20251119
  Transmission Date: 20260118
  Serious: Yes (Other)
  Sender: ABBVIE
  Company Number: US-ABBVIE-6539353

PATIENT
  Age: 64 Year
  Sex: Female
  Weight: 92 kg

DRUGS (2)
  1. HUMIRA [Suspect]
     Active Substance: ADALIMUMAB
     Indication: Psoriatic arthropathy
     Dosage: FORM STRENGTH- 40 MILLIGRAM, DOSE FORM- SOLUTION FOR INJECTION IN PRE-FILLED PEN
     Route: 058
     Dates: start: 2016
  2. LIPITOR [Concomitant]
     Active Substance: ATORVASTATIN CALCIUM
     Indication: Blood cholesterol

REACTIONS (1)
  - Bone marrow disorder [Not Recovered/Not Resolved]

NARRATIVE: CASE EVENT DATE: 20250601
